FAERS Safety Report 6518732-8 (Version None)
Quarter: 2009Q4

REPORT INFORMATION
  Report Type: 
  Country: None (occurrence: None)
  Receive Date: 20091228
  Receipt Date: 20091223
  Transmission Date: 20100525
  Serious: Yes (Death)
  Sender: FDA-Public Use
  Company Number: PHEH2009US12753

PATIENT
  Sex: Male
  Weight: 61.678 kg

DRUGS (6)
  1. EXJADE [Suspect]
     Indication: MYELODYSPLASTIC SYNDROME
     Dosage: 1000 MG, QD
     Route: 048
     Dates: start: 20080828, end: 20080926
  2. EXJADE [Suspect]
     Indication: IRON OVERLOAD
  3. NEUPOGEN [Concomitant]
     Indication: NEUTROPENIA
     Dosage: 480 UG, QHS
     Route: 058
     Dates: end: 20080923
  4. PROCRIT                            /00909301/ [Concomitant]
     Indication: ANAEMIA
     Dosage: 60000 U, QW
     Route: 058
     Dates: end: 20080923
  5. DACOGEN [Concomitant]
     Indication: MYELODYSPLASTIC SYNDROME
     Dosage: 38 MG, DAILY X 5 DAYS EVERY 4 WEEKS
     Route: 042
     Dates: start: 20080908, end: 20080912
  6. ZOFRAN [Concomitant]
     Indication: NAUSEA
     Dosage: 32 MG DAILY WITH CHEMO
     Route: 042
     Dates: start: 20080908, end: 20080912

REACTIONS (6)
  - FEBRILE NEUTROPENIA [None]
  - MALIGNANT NEOPLASM PROGRESSION [None]
  - MYOCARDIAL ISCHAEMIA [None]
  - NAUSEA [None]
  - PANCYTOPENIA [None]
  - WEIGHT DECREASED [None]
